FAERS Safety Report 6544324-0 (Version None)
Quarter: 2010Q1

REPORT INFORMATION
  Report Type: 
  Country: None (occurrence: None)
  Receive Date: 20100120
  Receipt Date: 20100114
  Transmission Date: 20100710
  Serious: Yes (Death)
  Sender: FDA-Public Use
  Company Number: US-GILEAD-2010-0026484

PATIENT
  Sex: Male

DRUGS (10)
  1. LETAIRIS [Suspect]
     Indication: PULMONARY ARTERIAL HYPERTENSION
     Route: 048
     Dates: start: 20090909
  2. ADVAIR DISKUS 100/50 [Concomitant]
  3. CLONAZEPAM [Concomitant]
  4. PAROXETINE HCL [Concomitant]
  5. DIATX [Concomitant]
  6. CALCITRIOL [Concomitant]
  7. PROMETHAZINE [Concomitant]
  8. NORCO [Concomitant]
  9. RANITIDINE [Concomitant]
  10. RENAGEL [Concomitant]

REACTIONS (1)
  - DEATH [None]
